FAERS Safety Report 25947989 (Version 3)
Quarter: 2025Q4

REPORT INFORMATION
  Report Type: Spontaneous
  Country: CH (occurrence: CH)
  Receive Date: 20251022
  Receipt Date: 20251106
  Transmission Date: 20260117
  Serious: Yes (Other)
  Sender: INCYTE
  Company Number: CH-002147023-NVSC2025CH156723

PATIENT

DRUGS (2)
  1. RUXOLITINIB [Suspect]
     Active Substance: RUXOLITINIB
     Indication: Still^s disease
     Dosage: 15 MG, BID
     Route: 065
  2. RUXOLITINIB [Suspect]
     Active Substance: RUXOLITINIB
     Indication: Haemophagocytic lymphohistiocytosis
     Dosage: 5 MG, BID
     Route: 065

REACTIONS (4)
  - Hepatotoxicity [Unknown]
  - Drug ineffective for unapproved indication [Not Recovered/Not Resolved]
  - Disease recurrence [Unknown]
  - Off label use [Unknown]
